FAERS Safety Report 6368639-4 (Version None)
Quarter: 2009Q3

REPORT INFORMATION
  Report Type: 
  Country: None (occurrence: None)
  Receive Date: 20090922
  Receipt Date: 20090908
  Transmission Date: 20100115
  Serious: Yes (Death)
  Sender: FDA-Public Use
  Company Number: PE-PFIZER INC-2009260828

PATIENT
  Age: 93 Year

DRUGS (5)
  1. LYRICA [Suspect]
     Indication: NEURALGIA
     Dosage: 75 MG, 3X/DAY
     Route: 048
     Dates: start: 20080730
  2. TRAMADOL [Concomitant]
     Indication: EXOSTOSIS
     Dosage: UNK
     Dates: start: 20090601
  3. PARACETAMOL [Concomitant]
     Indication: EXOSTOSIS
     Dosage: UNK
  4. LOSARTAN [Concomitant]
  5. ACETYLSALICYLIC ACID [Concomitant]

REACTIONS (1)
  - MYOCARDIAL INFARCTION [None]
